FAERS Safety Report 8934312 (Version 1)
Quarter: 2012Q4

REPORT INFORMATION
  Report Type: 
  Country: TR (occurrence: TR)
  Receive Date: 20121129
  Receipt Date: 20121129
  Transmission Date: 20130627
  Serious: Yes (Hospitalization)
  Sender: FDA-Public Use
  Company Number: TR-TEVA-371437ISR

PATIENT
  Age: 31 Year
  Sex: Male

DRUGS (5)
  1. VINCRISTINE [Suspect]
     Indication: BURKITT^S LYMPHOMA STAGE I
     Route: 065
  2. DOXORUBICIN [Suspect]
     Indication: BURKITT^S LYMPHOMA STAGE I
     Route: 065
  3. RITUXIMAB [Suspect]
     Indication: BURKITT^S LYMPHOMA STAGE I
     Route: 065
  4. CYCLOPHOSPHAMIDE [Suspect]
     Indication: BURKITT^S LYMPHOMA STAGE I
     Route: 065
  5. DEXAMETHASONE [Suspect]
     Indication: BURKITT^S LYMPHOMA STAGE I
     Route: 065

REACTIONS (2)
  - Pancytopenia [Unknown]
  - Febrile neutropenia [Unknown]
